FAERS Safety Report 24551880 (Version 1)
Quarter: 2024Q4

REPORT INFORMATION
  Report Type: Spontaneous
  Country: IT (occurrence: IT)
  Receive Date: 20241026
  Receipt Date: 20241026
  Transmission Date: 20250115
  Serious: Yes (Other)
  Sender: AUROBINDO
  Company Number: IT-MINISAL02-1006066

PATIENT
  Age: 52 Year
  Sex: Female
  Weight: 50 kg

DRUGS (1)
  1. ARIPIPRAZOLE [Suspect]
     Active Substance: ARIPIPRAZOLE
     Indication: Mood altered
     Dosage: 15 MILLIGRAM, ONCE A DAY (15 MG/DIE)
     Route: 048
     Dates: start: 20240808, end: 20240910

REACTIONS (8)
  - Facial spasm [Recovered/Resolved]
  - Loss of consciousness [Recovered/Resolved]
  - Balance disorder [Recovered/Resolved]
  - Vertigo [Recovered/Resolved]
  - Sleep disorder [Recovered/Resolved]
  - Muscle contractions involuntary [Recovered/Resolved]
  - Hypertensive crisis [Recovered/Resolved]
  - Menstruation irregular [Recovered/Resolved]

NARRATIVE: CASE EVENT DATE: 20240829
